FAERS Safety Report 7039060-0 (Version None)
Quarter: 2010Q4

REPORT INFORMATION
  Report Type: 
  Country: None (occurrence: None)
  Receive Date: 20101012
  Receipt Date: 20100928
  Transmission Date: 20110411
  Serious: Yes (Other)
  Sender: FDA-Public Use
  Company Number: GB-RANBAXY-2010RR-38678

PATIENT
  Age: 65 Year
  Sex: Male

DRUGS (4)
  1. CLARITHROMYCIN [Suspect]
     Indication: COUGH
  2. CLARITHROMYCIN [Suspect]
     Indication: LOWER RESPIRATORY TRACT INFECTION
  3. AMOXICILLIN [Concomitant]
     Indication: PNEUMONIA
  4. FUROSEMIDE [Concomitant]

REACTIONS (2)
  - RASH MACULO-PAPULAR [None]
  - TUBULOINTERSTITIAL NEPHRITIS [None]
